FAERS Safety Report 23162158 (Version 1)
Quarter: 2023Q4

REPORT INFORMATION
  Report Type: Spontaneous
  Country: JP (occurrence: JP)
  Receive Date: 20231109
  Receipt Date: 20231109
  Transmission Date: 20240110
  Serious: Yes (Other)
  Sender: FDA-Public Use
  Company Number: JP-KYOWAKIRIN-2023KK017065

PATIENT

DRUGS (1)
  1. DARBEPOETIN ALFA [Suspect]
     Active Substance: DARBEPOETIN ALFA
     Indication: Myelodysplastic syndrome
     Dosage: 240 MICROGRAM, QWK
     Route: 058

REACTIONS (5)
  - Acute myeloid leukaemia [Unknown]
  - Prostate cancer [Unknown]
  - Diabetes mellitus [Unknown]
  - Glaucoma [Unknown]
  - Pneumonia aspiration [Unknown]
